FAERS Safety Report 9608420 (Version 4)
Quarter: 2013Q4

REPORT INFORMATION
  Report Type: Report from Study
  Country: US (occurrence: US)
  Receive Date: 20131009
  Receipt Date: 20131101
  Transmission Date: 20140711
  Serious: Yes (Death, Hospitalization)
  Sender: FDA-Public Use
  Company Number: PHEH2013US020501

PATIENT
  Sex: Female

DRUGS (2)
  1. TOBI [Suspect]
     Indication: PSEUDOMONAS INFECTION
     Dosage: 150 MG, QD FOR 10 DAYS OF EVERY MONTH
  2. TOBI [Suspect]
     Dosage: 300 MG, (HALF VIAL DAILY FOR 10 DAYS)

REACTIONS (5)
  - Renal failure [Fatal]
  - Multi-organ failure [Unknown]
  - Swelling [Unknown]
  - Dyspnoea [Not Recovered/Not Resolved]
  - Respiratory distress [Unknown]
